FAERS Safety Report 6606832-3 (Version None)
Quarter: 2010Q1

REPORT INFORMATION
  Report Type: 
  Country: None (occurrence: None)
  Receive Date: 20100226
  Receipt Date: 20090213
  Transmission Date: 20100710
  Serious: No
  Sender: FDA-Public Use
  Company Number: US-ALLERGAN-0901957US

PATIENT
  Age: 38 Year
  Sex: Male

DRUGS (2)
  1. BOTOX COSMETIC [Suspect]
     Indication: SKIN WRINKLING
     Dosage: 74 UNITS, UNK
     Route: 030
     Dates: start: 20081219, end: 20081219
  2. BOTOX COSMETIC [Suspect]
     Dosage: 74 UNITS, UNK
     Route: 030
     Dates: start: 20090212, end: 20090212

REACTIONS (2)
  - DRUG INEFFECTIVE [None]
  - WRONG TECHNIQUE IN DRUG USAGE PROCESS [None]
